FAERS Safety Report 5165324-1 (Version None)
Quarter: 2006Q4

REPORT INFORMATION
  Report Type: 
  Country: None (occurrence: None)
  Receive Date: 20061206
  Receipt Date: 20060530
  Transmission Date: 20070319
  Serious: Yes (Death, Hospitalization, Other)
  Sender: FDA-Public Use
  Company Number: US-BAYER-200613659BWH

PATIENT
  Age: 68 Year
  Sex: Male
  Weight: 93 kg

DRUGS (2)
  1. NEXAVAR [Suspect]
     Indication: RENAL CELL CARCINOMA STAGE UNSPECIFIED
     Dosage: TOTAL DAILY DOSE: 800 MG  UNIT DOSE: 200 MG
     Route: 048
     Dates: start: 20060223, end: 20060518
  2. PERIFOSINE [Concomitant]

REACTIONS (5)
  - CARDIOMYOPATHY [None]
  - CEREBROVASCULAR ACCIDENT [None]
  - DEATH [None]
  - DYSPNOEA [None]
  - EJECTION FRACTION DECREASED [None]
